FAERS Safety Report 15796927 (Version 2)
Quarter: 2019Q1

REPORT INFORMATION
  Report Type: Report from Study
  Country: US (occurrence: US)
  Receive Date: 20190108
  Receipt Date: 20190123
  Transmission Date: 20190417
  Serious: Yes (Death)
  Sender: FDA-Public Use
  Company Number: US-TAIHO ONCOLOGY  INC-EU-2019-00018

PATIENT
  Age: 62 Year
  Sex: Male
  Weight: 96.1 kg

DRUGS (4)
  1. MORPHINE [Concomitant]
     Active Substance: MORPHINE
     Dosage: NI
  2. LONSURF [Suspect]
     Active Substance: TIPIRACIL HYDROCHLORIDE\TRIFLURIDINE
     Indication: COLON CANCER
     Dosage: CYCLE 1 COMPLETED, NEVER STARTED CYCLE 2
     Route: 048
     Dates: start: 20181015, end: 20181026
  3. OXYCODONE [Concomitant]
     Active Substance: OXYCODONE
     Dosage: NI
  4. PREDNISONE. [Concomitant]
     Active Substance: PREDNISONE
     Dosage: NI

REACTIONS (5)
  - Rectal cancer stage IV [Fatal]
  - Anxiety [Unknown]
  - Oedema peripheral [Unknown]
  - Urinary incontinence [Unknown]
  - Fatigue [Unknown]

NARRATIVE: CASE EVENT DATE: 2018
